FAERS Safety Report 5204232-4 (Version None)
Quarter: 2007Q1

REPORT INFORMATION
  Report Type: 
  Country: None (occurrence: None)
  Receive Date: 20070105
  Receipt Date: 20061227
  Transmission Date: 20070707
  Serious: Yes (Death)
  Sender: FDA-Public Use
  Company Number: 009635

PATIENT
  Age: 34 Year
  Sex: Male
  Weight: 78 kg

DRUGS (2)
  1. CLARAVIS [Suspect]
     Indication: BRAIN NEOPLASM MALIGNANT
     Dosage: 20 MG, BID, ORAL; 40 MG, QD, ORAL
     Route: 048
     Dates: start: 20060531, end: 20060801
  2. CLARAVIS [Suspect]
     Indication: BRAIN NEOPLASM MALIGNANT
     Dosage: 20 MG, BID, ORAL; 40 MG, QD, ORAL
     Route: 048
     Dates: start: 20060801, end: 20061204

REACTIONS (1)
  - BRAIN NEOPLASM MALIGNANT [None]
